FAERS Safety Report 18439318 (Version 3)
Quarter: 2021Q1

REPORT INFORMATION
  Report Type: Spontaneous
  Country: US (occurrence: US)
  Receive Date: 20201029
  Receipt Date: 20210301
  Transmission Date: 20210419
  Serious: Yes (Death, Life-Threatening, Hospitalization, Other)
  Sender: FDA-Public Use
  Company Number: US-DRREDDYS-USA/USA/20/0128403

PATIENT
  Age: 56 Year
  Sex: Male

DRUGS (11)
  1. ACETYLSALICYLIC ACID [Concomitant]
     Active Substance: ASPIRIN
     Indication: PRODUCT USED FOR UNKNOWN INDICATION
  2. AZITHROMYCIN ANHYDROUS. [Concomitant]
     Active Substance: AZITHROMYCIN ANHYDROUS
     Indication: COVID-19
  3. HEPARIN SODIUM. [Suspect]
     Active Substance: HEPARIN SODIUM
     Indication: COAGULOPATHY
     Dosage: DRIP
     Route: 065
  4. ATORVASTATIN [Concomitant]
     Active Substance: ATORVASTATIN
     Indication: PRODUCT USED FOR UNKNOWN INDICATION
  5. CLOPIDOGREL BISULFATE. [Concomitant]
     Active Substance: CLOPIDOGREL BISULFATE
     Indication: PRODUCT USED FOR UNKNOWN INDICATION
  6. HYDROXYCHLOROQUINE [Concomitant]
     Active Substance: HYDROXYCHLOROQUINE
     Indication: COVID-19
  7. AMLODIPINE [Concomitant]
     Active Substance: AMLODIPINE BESYLATE
     Indication: HYPERTENSION
  8. HEPARIN SODIUM. [Suspect]
     Active Substance: HEPARIN SODIUM
     Route: 058
  9. LEVETIRACETAM. [Concomitant]
     Active Substance: LEVETIRACETAM
     Indication: SEIZURE
     Route: 065
  10. CEFTRIAXONE. [Concomitant]
     Active Substance: CEFTRIAXONE
     Indication: COVID-19
  11. METFORMIN [Concomitant]
     Active Substance: METFORMIN HYDROCHLORIDE
     Indication: DIABETES MELLITUS

REACTIONS (4)
  - Activated partial thromboplastin time prolonged [Unknown]
  - Ischaemic stroke [Unknown]
  - Symptom masked [Fatal]
  - Hypercoagulation [Unknown]
